FAERS Safety Report 4695639-2 (Version None)
Quarter: 2005Q2

REPORT INFORMATION
  Report Type: 
  Country: None (occurrence: None)
  Receive Date: 20050608
  Receipt Date: 20050411
  Transmission Date: 20051028
  Serious: Yes (Hospitalization)
  Sender: FDA-Public Use
  Company Number: F03200500052

PATIENT
  Age: 67 Year
  Sex: Male

DRUGS (4)
  1. ELOXATIN [Suspect]
     Indication: COLORECTAL CANCER
     Dosage: 85 MG/M2 Q2W - INTRAVENOUS NOS
     Route: 042
     Dates: start: 20050316, end: 20050316
  2. CETUXIMAB - SOLUTION [Suspect]
     Indication: COLORECTAL CANCER
     Dosage: 250 MG/M2 1/WEEK - INTRAVENOUS NOS
     Route: 042
     Dates: start: 20050323, end: 20050323
  3. FLUOROURACIL [Suspect]
     Indication: COLORECTAL CANCER
     Dosage: 400 MG/M2 Q2W - INTRAVENOUS NOS
     Route: 042
     Dates: start: 20050316, end: 20050316
  4. LEUCOVORIN CALCIUM [Suspect]
     Indication: COLORECTAL CANCER
     Dosage: 400 MG Q2W - INTRAVENOUS NOS
     Route: 042
     Dates: start: 20050316, end: 20050316

REACTIONS (1)
  - DEHYDRATION [None]
